FAERS Safety Report 9592805 (Version 3)
Quarter: 2013Q4

REPORT INFORMATION
  Report Type: Spontaneous
  Country: GB (occurrence: GB)
  Receive Date: 20131004
  Receipt Date: 20131218
  Transmission Date: 20140711
  Serious: Yes (Disabling)
  Sender: FDA-Public Use
  Company Number: PHFR2013GB002100

PATIENT
  Age: 29 Year
  Sex: Male
  Weight: 104.7 kg

DRUGS (4)
  1. CLOZAPINE [Suspect]
     Indication: SCHIZOPHRENIA
     Dosage: 400 MG, DAILY
     Route: 048
     Dates: start: 201212
  2. CLOZAPINE [Suspect]
     Dosage: 350 MG (50 MG MANE 300 MG NOCTE)
     Route: 048
  3. CLOZAPINE [Suspect]
     Dosage: 300 MG, NOCTE
  4. SERTRALINE [Concomitant]
     Indication: DEPRESSED MOOD
     Dosage: 50 MG, QD
     Route: 048
     Dates: start: 2011

REACTIONS (2)
  - Retrograde ejaculation [Not Recovered/Not Resolved]
  - Antipsychotic drug level increased [Recovering/Resolving]
